FAERS Safety Report 7247506-8 (Version None)
Quarter: 2011Q1

REPORT INFORMATION
  Report Type: 
  Country: None (occurrence: None)
  Receive Date: 20110127
  Receipt Date: 20110117
  Transmission Date: 20110831
  Serious: Yes (Hospitalization)
  Sender: FDA-Public Use
  Company Number: FR-ROCHE-751430

PATIENT
  Sex: Male
  Weight: 19.2 kg

DRUGS (15)
  1. IFOSFAMIDE [Suspect]
     Indication: RHABDOMYOSARCOMA
     Dosage: FORM: 6 G/M2,LAST DOSE PRIOR TO SAE: 16 DEC 2010
     Route: 042
     Dates: start: 20101103
  2. VINCRISTINE [Suspect]
     Indication: RHABDOMYOSARCOMA
     Dosage: FORM: 1.5 MG/M2, LAST DOSE PRIOR TO SAE: 05 JANUARY 2011
     Route: 042
     Dates: start: 20101103
  3. DOXORUBICIN HCL [Suspect]
     Indication: RHABDOMYOSARCOMA
     Dosage: FORM: 60 MG/M2,LAST DOSE PRIOR TO SAE: 06 JANUARY 2011
     Route: 042
     Dates: start: 20101103
  4. ROCEPHIN [Concomitant]
     Dates: start: 20101223, end: 20110103
  5. VANCOMYCINE [Concomitant]
     Dates: start: 20101223, end: 20110103
  6. DACTINOMYCIN [Suspect]
     Indication: RHABDOMYOSARCOMA
     Dosage: FORM: 1.5 MG/M2, LAST DOSE PRIOR TO SAE: 05 JANUARY 2011
     Route: 042
     Dates: start: 20101103
  7. CYCLOPHOSPHAMIDE [Suspect]
     Indication: RHABDOMYOSARCOMA
     Dosage: DOSAGE FORM: 750 MG/M2 LAST DOSE PRIOR TO SAE: 6 JANUARY 2011
     Route: 042
     Dates: start: 20110105
  8. KETAMINE [Concomitant]
  9. PROCTOLOG [Concomitant]
  10. MOVICOL [Concomitant]
  11. LAROXYL [Concomitant]
  12. AMIKACIN [Concomitant]
     Dates: start: 20101223, end: 20101227
  13. BEVACIZUMAB [Suspect]
     Indication: RHABDOMYOSARCOMA
     Dosage: DOSAGE FORM: 7.5 MG/KG, LAST DOSE PRIOR TO SAE: 05 JANUARY 2011
     Route: 042
     Dates: start: 20101103
  14. MORPHINE [Concomitant]
     Dates: start: 20100101
  15. FLIXOTIDE [Concomitant]

REACTIONS (2)
  - FEBRILE BONE MARROW APLASIA [None]
  - MUCOSAL INFLAMMATION [None]
